FAERS Safety Report 4438481-X (Version None)
Quarter: 2004Q3

REPORT INFORMATION
  Report Type: 
  Country: None (occurrence: None)
  Receive Date: 20040728
  Receipt Date: 20040322
  Transmission Date: 20050211
  Serious: No
  Sender: FDA-Public Use
  Company Number: USA040362764

PATIENT
  Sex: Male

DRUGS (4)
  1. HUMATROPE [Suspect]
     Indication: GROWTH HORMONE DEFICIENCY
     Dosage: 2.4 MG/DAY
     Dates: start: 20000101
  2. STRATTERA [Suspect]
     Dosage: 40 MG/DAY
  3. LEXAPRO [Concomitant]
  4. ADDERALL 10 [Concomitant]

REACTIONS (2)
  - ASPERGER'S DISORDER [None]
  - SOCIAL AVOIDANT BEHAVIOUR [None]
